FAERS Safety Report 14076380 (Version 1)
Quarter: 2017Q4

REPORT INFORMATION
  Report Type: Spontaneous
  Country: US (occurrence: US)
  Receive Date: 20171011
  Receipt Date: 20171011
  Transmission Date: 20180321
  Serious: Yes (Other)
  Sender: FDA-Public Use
  Company Number: US-TEVA-814683USA

PATIENT
  Sex: Female

DRUGS (9)
  1. BACLOFEN. [Suspect]
     Active Substance: BACLOFEN
     Indication: PRODUCT USED FOR UNKNOWN INDICATION
     Route: 065
  2. LABETALOL HYDROCHLORIDE. [Concomitant]
     Active Substance: LABETALOL HYDROCHLORIDE
  3. PREDNISONE. [Concomitant]
     Active Substance: PREDNISONE
  4. MODAFINIL. [Concomitant]
     Active Substance: MODAFINIL
  5. AMPYRA [Interacting]
     Active Substance: DALFAMPRIDINE
     Indication: PRODUCT USED FOR UNKNOWN INDICATION
     Dosage: 20 MILLIGRAM DAILY;
     Route: 065
     Dates: start: 20170607
  6. TYSABRI [Interacting]
     Active Substance: NATALIZUMAB
     Indication: MULTIPLE SCLEROSIS
     Dosage: 10 MILLIGRAM DAILY;
     Route: 042
     Dates: start: 201605, end: 201708
  7. BUPROPION HYDROCHLORIDE. [Concomitant]
     Active Substance: BUPROPION HYDROCHLORIDE
  8. ARMOUR THYROID [Concomitant]
     Active Substance: THYROID, PORCINE
  9. VITAMIN D3 [Concomitant]
     Active Substance: CHOLECALCIFEROL

REACTIONS (24)
  - Dry mouth [Unknown]
  - Feeling abnormal [Unknown]
  - Condition aggravated [Unknown]
  - Asthenia [Unknown]
  - Loss of consciousness [Unknown]
  - Depression [Unknown]
  - Fatigue [Unknown]
  - Potentiating drug interaction [Unknown]
  - Dehydration [Unknown]
  - Anxiety [Unknown]
  - Neuralgia [Unknown]
  - Stress [Unknown]
  - Muscle spasticity [Unknown]
  - Muscle twitching [Unknown]
  - Headache [Unknown]
  - Drug intolerance [Unknown]
  - Fall [Unknown]
  - Vulvovaginal dryness [Unknown]
  - Haemoglobin decreased [Unknown]
  - Haematocrit decreased [Unknown]
  - Mean cell volume decreased [Unknown]
  - Cognitive disorder [Unknown]
  - Temperature intolerance [Unknown]
  - Vitamin D deficiency [Unknown]
